FAERS Safety Report 9369839 (Version 2)
Quarter: 2013Q3

REPORT INFORMATION
  Report Type: Spontaneous
  Country: FR (occurrence: FR)
  Receive Date: 20130626
  Receipt Date: 20130801
  Transmission Date: 20140515
  Serious: Yes (Other)
  Sender: FDA-Public Use
  Company Number: FR-BRISTOL-MYERS SQUIBB COMPANY-19033661

PATIENT
  Sex: Male
  Weight: 85 kg

DRUGS (4)
  1. GLUCOPHAGE [Suspect]
     Dosage: PRODUCT STRENGTH IS 850MG
     Route: 048
     Dates: start: 1998
  2. SOMATULINE [Concomitant]
     Indication: GASTRINOMA
     Route: 030
     Dates: start: 2006, end: 201305
  3. SIMVASTATIN [Concomitant]
     Indication: HYPERCHOLESTEROLAEMIA
     Route: 048
     Dates: start: 2002
  4. TERBINAFINE [Concomitant]
     Indication: FUNGAL INFECTION
     Dosage: PRODUCT STRENGTH IS 250MG
     Route: 048
     Dates: start: 2010, end: 2012

REACTIONS (1)
  - Pulmonary fibrosis [Not Recovered/Not Resolved]
